FAERS Safety Report 17055501 (Version 3)
Quarter: 2019Q4

REPORT INFORMATION
  Report Type: Spontaneous
  Country: FR (occurrence: FR)
  Receive Date: 20191120
  Receipt Date: 20191212
  Transmission Date: 20200122
  Serious: Yes (Hospitalization, Other)
  Sender: FDA-Public Use
  Company Number: FR-009507513-1911FRA006873

PATIENT
  Age: 72 Year
  Sex: Male

DRUGS (28)
  1. ZARZIO [Suspect]
     Active Substance: FILGRASTIM
     Indication: NEUTROPENIA
     Dosage: 30 MEGA-INTERNATIONAL UNIT, QD
     Route: 058
     Dates: start: 20191015, end: 20191020
  2. BACTRIM [Suspect]
     Active Substance: SULFAMETHOXAZOLE\TRIMETHOPRIM
     Indication: INFECTION PROPHYLAXIS
     Dosage: 1 TABLET OF 800/160MG A DAY ON SUNDAY, WEDNESDAY AND FRIDAY
     Route: 048
     Dates: start: 20190930, end: 20191026
  3. KARDEGIC [Suspect]
     Active Substance: ASPIRIN DL-LYSINE
     Dosage: 75 MILLIGRAM, QD, 0-1-0 (LONG-TERM)
     Route: 048
  4. LITAK [Suspect]
     Active Substance: CLADRIBINE
     Indication: HAIRY CELL LEUKAEMIA RECURRENT
     Dosage: 11.60 MG PER DAY FROM D1 TO D5
     Route: 058
     Dates: start: 20190930, end: 20191004
  5. LASILIX [Concomitant]
     Active Substance: FUROSEMIDE
     Dosage: 40 MG, PM
     Dates: start: 20191028
  6. CEFTRIAXONE. [Suspect]
     Active Substance: CEFTRIAXONE
     Indication: ANTIBIOTIC THERAPY
     Dosage: 1 GRAM, QD
     Route: 042
     Dates: start: 20191008, end: 20191009
  7. TRULICITY [Suspect]
     Active Substance: DULAGLUTIDE
     Dosage: 1 INJECTION OF 1.5 MG ON SUNDAY (LONG-TERM)
     Route: 058
  8. VALACYCLOVIR HYDROCHLORIDE. [Suspect]
     Active Substance: VALACYCLOVIR HYDROCHLORIDE
     Indication: INFECTION PROPHYLAXIS
     Dosage: 500 MILLIGRAM, Q12H, 1-0-1
     Route: 048
     Dates: start: 20191009, end: 20191026
  9. PELMEG [Suspect]
     Active Substance: PEGFILGRASTIM
     Indication: NEUTROPENIA
     Dosage: 6 MILLIGRAM
     Route: 058
     Dates: start: 20191007, end: 20191007
  10. EPOETIN (UNSPECIFIED) [Suspect]
     Active Substance: ERYTHROPOIETIN
     Indication: PRODUCT USED FOR UNKNOWN INDICATION
     Dosage: UNK
     Route: 065
  11. ATARAX [Concomitant]
     Active Substance: HYDROXYZINE HYDROCHLORIDE
     Dosage: 1 TABLET, PM
     Dates: start: 20191029
  12. VELMETIA [Suspect]
     Active Substance: METFORMIN\SITAGLIPTIN
     Dosage: 50MG/1000MG: 0-1-1 (LONG TERM)
     Route: 048
  13. ESOMEPRAZOLE. [Suspect]
     Active Substance: ESOMEPRAZOLE MAGNESIUM
     Dosage: 0-0-1 (LONG TERM)
     Route: 048
  14. LASILIX [Concomitant]
     Active Substance: FUROSEMIDE
     Dosage: 40 MG, DAILY (IN THE MORNINGS)
     Dates: start: 20191029
  15. POLARAMINE [Concomitant]
     Active Substance: DEXCHLORPHENIRAMINE MALEATE
     Dosage: 1 TABLET, DAILY
     Dates: start: 20191031
  16. RAMIPRIL. [Suspect]
     Active Substance: RAMIPRIL
     Dosage: 2.5 MILLIGRAM, QD, 0-1-0 (LONG-TERM)
     Route: 048
  17. DIAMICRON [Suspect]
     Active Substance: GLICLAZIDE
     Dosage: 1-0-0, MODIFIED-RELEASE TABLET
     Route: 048
     Dates: end: 20191026
  18. FOLINORAL [Suspect]
     Active Substance: LEUCOVORIN CALCIUM
     Indication: PROPHYLAXIS
     Dosage: 1 TABLET OF 25 MG ON SUNDAY
     Route: 048
     Dates: start: 20190930, end: 20191026
  19. BEPANTHENE [Concomitant]
     Active Substance: DEXPANTHENOL
     Indication: SKIN EXFOLIATION
     Dosage: UNK
     Dates: start: 20191031
  20. FLUVASTATIN SODIUM. [Suspect]
     Active Substance: FLUVASTATIN SODIUM
     Dosage: 20 MILLIGRAM, QD, 0-0-1 (LONG TERM)
     Route: 048
  21. POLARAMINE [Concomitant]
     Active Substance: DEXCHLORPHENIRAMINE MALEATE
     Dosage: 1 AMPULE (EVERY NIGHT)
     Dates: start: 20191029
  22. FORLAX [Suspect]
     Active Substance: POLYETHYLENE GLYCOL 4000
     Dosage: 10 GRAM, AS NECESSARY (LONG-TERM)
     Route: 048
  23. PENTACARINAT [Concomitant]
     Active Substance: PENTAMIDINE ISETHIONATE
     Dosage: UNK
  24. LASILIX [Concomitant]
     Active Substance: FUROSEMIDE
     Dosage: 20 MG, AM
     Dates: start: 20191031
  25. BINOCRIT [Suspect]
     Active Substance: ERYTHROPOIETIN
     Indication: ANAEMIA
     Dosage: 30000 INTERNATIONAL UNIT, EVERY MONDAY
     Route: 058
     Dates: start: 20191014, end: 20191021
  26. CIPROFLOXACIN. [Suspect]
     Active Substance: CIPROFLOXACIN
     Indication: FEBRILE BONE MARROW APLASIA
     Dosage: 500 MILLIGRAM, Q12H, 1-0-1
     Route: 048
     Dates: start: 20191011, end: 20191018
  27. BACTRIM [Suspect]
     Active Substance: SULFAMETHOXAZOLE\TRIMETHOPRIM
     Dosage: 1 TABLET OF 800/160MG A DAY ON SUNDAY, WEDNESDAY AND FRIDAY
     Route: 048
     Dates: start: 20190930, end: 20191026
  28. TAZOCILLINE [Suspect]
     Active Substance: PIPERACILLIN SODIUM\TAZOBACTAM SODIUM
     Indication: FEBRILE BONE MARROW APLASIA
     Dosage: 4 G/500 MG; 1 DOSAGE FORM
     Route: 042
     Dates: start: 20191008, end: 20191008

REACTIONS (8)
  - Neutropenia [Unknown]
  - Pruritus [Recovered/Resolved]
  - Generalised oedema [Not Recovered/Not Resolved]
  - Anaemia [Unknown]
  - Dysuria [Unknown]
  - Rash [Not Recovered/Not Resolved]
  - Face oedema [Unknown]
  - Febrile bone marrow aplasia [Recovered/Resolved]

NARRATIVE: CASE EVENT DATE: 201910
